FAERS Safety Report 8756690 (Version 1)
Quarter: 2012Q4

REPORT INFORMATION
  Report Type: 
  Country: US (occurrence: US)
  Receive Date: 20120828
  Receipt Date: 20120828
  Transmission Date: 20130627
  Serious: Yes (Hospitalization)
  Sender: FDA-Public Use
  Company Number: US-US-EMD SERONO, INC.-7156181

PATIENT
  Sex: Male

DRUGS (1)
  1. OVIDREL [Suspect]
     Route: 065

REACTIONS (1)
  - Failure to thrive [Unknown]
